FAERS Safety Report 9371910 (Version 1)
Quarter: 2013Q2

REPORT INFORMATION
  Report Type: Spontaneous
  Country: SK (occurrence: SK)
  Receive Date: 20130627
  Receipt Date: 20130627
  Transmission Date: 20140414
  Serious: Yes (Life-Threatening)
  Sender: FDA-Public Use
  Company Number: SK-BAYER-2013-075650

PATIENT
  Sex: Female

DRUGS (1)
  1. MIRENA [Suspect]
     Indication: CONTRACEPTION
     Dosage: 20 MCG/24HR, CONT
     Route: 015

REACTIONS (6)
  - Amenorrhoea [None]
  - Depressive symptom [Recovering/Resolving]
  - Abnormal behaviour [Recovering/Resolving]
  - Anhedonia [Recovering/Resolving]
  - Suicide attempt [Recovering/Resolving]
  - Suicidal ideation [Recovering/Resolving]
